FAERS Safety Report 22180270 (Version 6)
Quarter: 2023Q2

REPORT INFORMATION
  Report Type: Spontaneous
  Country: ES (occurrence: ES)
  Receive Date: 20230406
  Receipt Date: 20230503
  Transmission Date: 20230721
  Serious: Yes (Death)
  Sender: FDA-Public Use
  Company Number: ES-JNJFOC-20230378217

PATIENT
  Sex: Female

DRUGS (1)
  1. IBUPROFEN [Suspect]
     Active Substance: IBUPROFEN
     Indication: Abdominal pain upper
     Dosage: TWO TABLETS A DAY FOR A LONG TIME
     Route: 065

REACTIONS (9)
  - Oesophageal ulcer [Fatal]
  - Hypovolaemic shock [Fatal]
  - Aortic dissection [Fatal]
  - Aorto-oesophageal fistula [Fatal]
  - Haemoptysis [Fatal]
  - Syncope [Fatal]
  - Cardiac arrest [Fatal]
  - Hypophagia [Fatal]
  - Fatigue [Fatal]
